FAERS Safety Report 7909939-3 (Version None)
Quarter: 2011Q4

REPORT INFORMATION
  Report Type: 
  Country: None (occurrence: None)
  Receive Date: 20111111
  Receipt Date: 20111103
  Transmission Date: 20120403
  Serious: Yes (Life-Threatening, Hospitalization)
  Sender: FDA-Public Use
  Company Number: DE-ROCHE-1009768

PATIENT
  Age: 64 Year
  Sex: Female

DRUGS (5)
  1. OLMESARTAN MEDOXOMIL [Concomitant]
  2. HERCEPTIN [Suspect]
     Indication: BREAST CANCER
     Route: 042
     Dates: start: 20050101
  3. BISOPROLOL [Concomitant]
  4. MOXONIDIN [Concomitant]
  5. LYRICA [Concomitant]

REACTIONS (3)
  - HYPERTENSIVE CRISIS [None]
  - CORONARY ARTERY DISEASE [None]
  - ANGINA PECTORIS [None]
